FAERS Safety Report 13739286 (Version 1)
Quarter: 2017Q3

REPORT INFORMATION
  Report Type: Report from Study
  Country: US (occurrence: US)
  Receive Date: 20170710
  Receipt Date: 20170710
  Transmission Date: 20171127
  Serious: Yes (Hospitalization, Other)
  Sender: FDA-Public Use
  Company Number: US-ALEXION-A201707367

PATIENT
  Sex: Male

DRUGS (1)
  1. SOLIRIS [Suspect]
     Active Substance: ECULIZUMAB
     Indication: PRODUCT USED FOR UNKNOWN INDICATION
     Route: 042

REACTIONS (7)
  - Dyspnoea [Unknown]
  - Vomiting [Unknown]
  - Graft versus host disease [Unknown]
  - Mesothelioma [Unknown]
  - Diarrhoea [Unknown]
  - Pleural effusion [Unknown]
  - Nausea [Unknown]
